FAERS Safety Report 19502759 (Version 2)
Quarter: 2023Q1

REPORT INFORMATION
  Report Type: Spontaneous
  Country: DE (occurrence: DE)
  Receive Date: 20210707
  Receipt Date: 20230117
  Transmission Date: 20230418
  Serious: Yes (Hospitalization)
  Sender: FDA-Public Use
  Company Number: DE-NOVARTISPH-NVSC2021DE144386

PATIENT
  Age: 59 Year
  Sex: Female
  Weight: 43 kg

DRUGS (15)
  1. PACLITAXEL [Suspect]
     Active Substance: PACLITAXEL
     Indication: Product used for unknown indication
     Dosage: UNK (NACH SCHEMA, INJEKTIONS-/INFUSIONSLOSUNG)
     Route: 042
  2. CARBOPLATIN [Suspect]
     Active Substance: CARBOPLATIN
     Indication: Product used for unknown indication
     Dosage: UNK (NACH SCHEMA, INJEKTIONS-/INFUSIONSLOSUNG)
     Route: 042
  3. BETAINE HYDROCHLORIDE [Concomitant]
     Active Substance: BETAINE HYDROCHLORIDE
     Indication: Product used for unknown indication
     Dosage: UNK
     Route: 003
  4. DIMETICON [Concomitant]
     Indication: Product used for unknown indication
     Dosage: UNK (BEI BLAHUNGEN BIS ZU 6 MAL TAGLICH, SAFT)
     Route: 048
  5. LORAZEPAM [Concomitant]
     Active Substance: LORAZEPAM
     Indication: Product used for unknown indication
     Dosage: UNK (BIS ZU 3 MAL TAGLICH, SCHMELZTABLETTEN )
     Route: 060
  6. TORSEMIDE [Concomitant]
     Active Substance: TORSEMIDE
     Indication: Product used for unknown indication
     Dosage: 5 MG, QD (5 MG, 1-0-0-0, TABLETTEN)
     Route: 048
  7. FENTANYL [Concomitant]
     Active Substance: FENTANYL
     Indication: Product used for unknown indication
     Dosage: 200 UG ORODISPERSIBLE TABLET (BIS ZU 6 MAL T?GLICH MAX 1X PRO H, SCHMELZTABLETTEN)
     Route: 060
  8. FENTANYL [Concomitant]
     Active Substance: FENTANYL
     Dosage: 25 UG, WECHSEL ALLE 3 TAGE, PFLASTER
     Route: 062
  9. ALLOPURINOL [Concomitant]
     Active Substance: ALLOPURINOL
     Indication: Product used for unknown indication
     Dosage: 100 MG, QD (100 MG, 1-0-0-0, TABLETTEN)
     Route: 048
  10. PANTOPRAZOLE [Concomitant]
     Active Substance: PANTOPRAZOLE
     Indication: Product used for unknown indication
     Dosage: 40 MG, QD (40 MG, 1-0-0-0, TABLETTEN)
     Route: 048
  11. PREGABALIN [Concomitant]
     Active Substance: PREGABALIN
     Indication: Product used for unknown indication
     Dosage: 50 MG, QD (50 MG, 0-0-1-0, KAPSELN)
     Route: 048
  12. METAMIZOLE [Concomitant]
     Active Substance: METAMIZOLE
     Indication: Product used for unknown indication
     Dosage: 500 MG, QID (1-1-1-1)
     Route: 048
  13. LEVOTHYROXINUM NATRICUM [Concomitant]
     Indication: Product used for unknown indication
     Dosage: 125 UG, QD (125 ?G, 1-0-0-0, TABLETTEN)
     Route: 048
  14. METOCLOPRAMIDE [Concomitant]
     Active Substance: METOCLOPRAMIDE
     Indication: Product used for unknown indication
     Dosage: 10 MG, TID (1-1-1-0)
     Route: 048
  15. BETAMETHASONE [Concomitant]
     Active Substance: BETAMETHASONE
     Indication: Product used for unknown indication
     Dosage: UNK (MORGENS UND ABENDS, SALBE)
     Route: 003

REACTIONS (6)
  - General physical health deterioration [Not Recovered/Not Resolved]
  - Oedema peripheral [Not Recovered/Not Resolved]
  - Dyspnoea exertional [Not Recovered/Not Resolved]
  - Feeling cold [Not Recovered/Not Resolved]
  - Dizziness [Not Recovered/Not Resolved]
  - Weight decreased [Not Recovered/Not Resolved]

NARRATIVE: CASE EVENT DATE: 20210301
